FAERS Safety Report 9166086 (Version 3)
Quarter: 2013Q3

REPORT INFORMATION
  Report Type: Report from Study
  Country: US (occurrence: US)
  Receive Date: 20130315
  Receipt Date: 20130715
  Transmission Date: 20140515
  Serious: Yes (Other)
  Sender: FDA-Public Use
  Company Number: US-ABBOTT-13P-163-1059115-00

PATIENT
  Age: 33 Year
  Sex: Female
  Weight: 62.2 kg

DRUGS (5)
  1. HUMIRA [Suspect]
     Indication: RHEUMATOID ARTHRITIS
     Dates: start: 2007, end: 201107
  2. HUMIRA [Suspect]
     Dates: start: 201107, end: 201203
  3. HUMIRA [Suspect]
     Dates: start: 20130219
  4. METHOTREXATE [Concomitant]
     Indication: RHEUMATOID ARTHRITIS
     Dates: end: 201106
  5. PRENATAL VITAMINS [Concomitant]
     Indication: VITAMIN SUPPLEMENTATION

REACTIONS (3)
  - Cephalo-pelvic disproportion [Recovered/Resolved]
  - Suppressed lactation [Unknown]
  - Inappropriate schedule of drug administration [Recovered/Resolved]
